FAERS Safety Report 8764193 (Version 1)
Quarter: 2012Q4

REPORT INFORMATION
  Report Type: 
  Country: US (occurrence: US)
  Receive Date: 20120831
  Receipt Date: 20120831
  Transmission Date: 20130627
  Serious: No
  Sender: FDA-Public Use
  Company Number: US-PFIZER INC-2012213007

PATIENT
  Age: 58 Year
  Sex: Female

DRUGS (7)
  1. CELEBREX [Suspect]
     Dosage: UNK
  2. NORVASC [Suspect]
     Dosage: UNK
  3. LIDOCAINE HCL [Suspect]
     Dosage: UNK
  4. LEVAQUIN [Suspect]
     Dosage: UNK
  5. PROPRANOLOL [Suspect]
     Dosage: UNK
  6. PROVENTIL [Suspect]
     Dosage: UNK
  7. LIDOCAINE/EPINEPHRINE [Suspect]
     Dosage: UNK

REACTIONS (1)
  - Drug hypersensitivity [Unknown]
